FAERS Safety Report 7932171-4 (Version None)
Quarter: 2011Q4

REPORT INFORMATION
  Report Type: 
  Country: None (occurrence: None)
  Receive Date: 20111121
  Receipt Date: 20111110
  Transmission Date: 20120403
  Serious: Yes (Hospitalization, Other)
  Sender: FDA-Public Use
  Company Number: US-ASTRAZENECA-2011SE68656

PATIENT
  Sex: Male

DRUGS (2)
  1. NEXIUM [Concomitant]
  2. PRILOSEC [Suspect]
     Route: 048

REACTIONS (2)
  - GASTROINTESTINAL INJURY [None]
  - GASTROOESOPHAGEAL REFLUX DISEASE [None]
